FAERS Safety Report 16452303 (Version 9)
Quarter: 2024Q2

REPORT INFORMATION
  Report Type: Spontaneous
  Country: US (occurrence: US)
  Receive Date: 20190619
  Receipt Date: 20240405
  Transmission Date: 20240716
  Serious: Yes (Death, Life-Threatening, Hospitalization, Other)
  Sender: FDA-Public Use
  Company Number: US-MYLANLABS-2019M1056031

PATIENT
  Age: 30 Year
  Sex: Male
  Weight: 64.853 kg

DRUGS (58)
  1. EPIPEN [Suspect]
     Active Substance: EPINEPHRINE
     Indication: Food allergy
     Dosage: 0.3 MILLIGRAM
     Route: 065
     Dates: start: 20190604, end: 20190604
  2. EPIPEN [Suspect]
     Active Substance: EPINEPHRINE
     Indication: Anaphylactic shock
     Dosage: 0.3 MILLILITER ONCE AS NEEDED
     Route: 030
  3. EPIPEN [Suspect]
     Active Substance: EPINEPHRINE
     Dosage: UNK
     Route: 065
  4. EPIPEN [Suspect]
     Active Substance: EPINEPHRINE
     Dosage: UNK
     Route: 065
  5. EPIPEN [Suspect]
     Active Substance: EPINEPHRINE
     Dosage: UNK
     Route: 065
  6. ACETAMINOPHEN [Concomitant]
     Active Substance: ACETAMINOPHEN
     Dosage: 5 UNK
     Route: 065
     Dates: start: 20221018
  7. ACETAMINOPHEN [Concomitant]
     Active Substance: ACETAMINOPHEN
     Dosage: UNK
     Route: 065
     Dates: start: 20221018
  8. ACETAMINOPHEN [Concomitant]
     Active Substance: ACETAMINOPHEN
     Dosage: UNK
     Route: 065
     Dates: start: 20230727
  9. ACETAMINOPHEN [Concomitant]
     Active Substance: ACETAMINOPHEN
     Dosage: UNK
     Route: 065
     Dates: start: 20231003
  10. ACETAMINOPHEN [Concomitant]
     Active Substance: ACETAMINOPHEN
     Indication: Pain
     Dosage: 20.3 MILLILITER
     Route: 065
     Dates: start: 20220112
  11. ACETAMINOPHEN [Concomitant]
     Active Substance: ACETAMINOPHEN
     Indication: Paroxysmal sympathetic hyperactivity
  12. ALBUTEROL [Concomitant]
     Active Substance: ALBUTEROL
     Indication: Wheezing
     Dosage: 2.5 MILLIGRAM
     Route: 065
  13. ALBUTEROL [Concomitant]
     Active Substance: ALBUTEROL
     Dosage: 2.5 MILLIGRAM
     Route: 065
  14. ALBUTEROL [Concomitant]
     Active Substance: ALBUTEROL
     Dosage: 2.5 MILLIGRAM
     Route: 065
     Dates: start: 20240807
  15. ALBUTEROL [Concomitant]
     Active Substance: ALBUTEROL
     Indication: Wheezing
     Dosage: 2 DOSAGE FORM
     Route: 065
     Dates: start: 20221213
  16. APIXABAN [Concomitant]
     Active Substance: APIXABAN
     Indication: Embolism venous
     Dosage: 2.5 MILLIGRAM
     Route: 065
     Dates: start: 20220511
  17. APIXABAN [Concomitant]
     Active Substance: APIXABAN
     Dosage: 2.5 MILLIGRAM
     Route: 065
     Dates: start: 20230511
  18. BACLOFEN [Concomitant]
     Active Substance: BACLOFEN
     Dosage: 15 MILLILITER, 3XW
     Route: 065
     Dates: start: 20230330
  19. BACLOFEN [Concomitant]
     Active Substance: BACLOFEN
     Dosage: 15 MILLILITER, 3XW
     Route: 065
     Dates: start: 20230604
  20. BACLOFEN [Concomitant]
     Active Substance: BACLOFEN
     Dosage: UNK
     Route: 065
     Dates: start: 20221129
  21. BACLOFEN [Concomitant]
     Active Substance: BACLOFEN
     Dosage: UNK
     Route: 065
     Dates: start: 20231129
  22. BACLOFEN [Concomitant]
     Active Substance: BACLOFEN
     Dosage: UNK
     Route: 065
     Dates: start: 20231027
  23. BACLOFEN [Concomitant]
     Active Substance: BACLOFEN
     Dosage: UNK
     Route: 065
     Dates: start: 20231215
  24. BUDESONIDE\FORMOTEROL [Concomitant]
     Active Substance: BUDESONIDE\FORMOTEROL
     Dosage: 2 DOSAGE FORM, BID
     Route: 065
     Dates: start: 20230707
  25. BUDESONIDE\FORMOTEROL FUMARATE DIHYDRATE [Concomitant]
     Active Substance: BUDESONIDE\FORMOTEROL FUMARATE DIHYDRATE
     Dosage: UNK
     Route: 065
  26. CARBOXYMETHYLCELLULOSE SODIUM [Concomitant]
     Active Substance: CARBOXYMETHYLCELLULOSE SODIUM
     Dosage: UNK
     Route: 065
  27. CETIRIZINE [Concomitant]
     Active Substance: CETIRIZINE HYDROCHLORIDE
     Dosage: 5 MILLIGRAM
     Route: 065
     Dates: start: 20230511
  28. CHLORHEXIDINE [Concomitant]
     Active Substance: CHLORHEXIDINE\CHLORHEXIDINE GLUCONATE
     Dosage: UNK
     Route: 065
  29. CLINDAMYCIN [Concomitant]
     Active Substance: CLINDAMYCIN
     Dosage: UNK
     Route: 065
     Dates: start: 20220221
  30. CLOBAZAM [Concomitant]
     Active Substance: CLOBAZAM
     Dosage: 1 DOSAGE FORM
     Route: 065
     Dates: start: 20220107
  31. CLOBAZAM [Concomitant]
     Active Substance: CLOBAZAM
     Dosage: 1 DOSAGE FORM, BID
     Route: 065
     Dates: start: 20221130
  32. DIAZEPAM [Concomitant]
     Active Substance: DIAZEPAM
     Dosage: 10 MILLIGRAM
     Route: 065
     Dates: start: 20230511
  33. DOCUSATE SODIUM [Concomitant]
     Active Substance: DOCUSATE SODIUM
     Indication: Constipation
     Dosage: 5 MILLILITER
     Route: 065
     Dates: start: 20230511
  34. DOXYCYCLINE HYCLATE [Concomitant]
     Active Substance: DOXYCYCLINE HYCLATE
     Indication: Pneumonia
     Dosage: 100 MILLIGRAM
     Route: 065
     Dates: start: 20230511
  35. ELIQUIS [Concomitant]
     Active Substance: APIXABAN
     Dosage: 1 DOSAGE FORM
     Route: 065
     Dates: start: 20220106
  36. FAMOTIDINE [Concomitant]
     Active Substance: FAMOTIDINE
     Dosage: 1 DOSAGE FORM
     Route: 065
     Dates: start: 20220106
  37. BISACODYL [Concomitant]
     Active Substance: BISACODYL
     Dosage: 1 DOSAGE FORM
     Route: 065
     Dates: start: 20220222
  38. BISACODYL [Concomitant]
     Active Substance: BISACODYL
     Dosage: UNK
     Route: 065
     Dates: start: 20231017
  39. GUAIFENESIN [Concomitant]
     Active Substance: GUAIFENESIN
     Dosage: 200 MILLIGRAM
     Route: 048
  40. GUAIFENESIN [Concomitant]
     Active Substance: GUAIFENESIN
     Dosage: 400 MILLIGRAM
     Route: 048
     Dates: start: 20221203
  41. GUAIFENESIN [Concomitant]
     Active Substance: GUAIFENESIN
     Dosage: 400 MILLIGRAM, 3XW
     Route: 048
     Dates: start: 20230111
  42. GUAIFENESIN [Concomitant]
     Active Substance: GUAIFENESIN
     Dosage: UNK
     Route: 065
     Dates: start: 20240115
  43. LEVETIRACETAM [Concomitant]
     Active Substance: LEVETIRACETAM
     Dosage: 1000 MILLIGRAM
     Route: 065
     Dates: start: 20220106
  44. LEVETIRACETAM [Concomitant]
     Active Substance: LEVETIRACETAM
     Dosage: 10 MILLILITER, 3XW
     Route: 065
     Dates: start: 20221118
  45. LEVETIRACETAM [Concomitant]
     Active Substance: LEVETIRACETAM
     Dosage: UNK
     Route: 065
     Dates: start: 20231208
  46. METOPROLOL TARTRATE [Concomitant]
     Active Substance: METOPROLOL TARTRATE
     Dosage: 25 MILLIGRAM, BID
     Route: 065
     Dates: start: 20220106
  47. METOPROLOL TARTRATE [Concomitant]
     Active Substance: METOPROLOL TARTRATE
     Dosage: UNK
     Route: 065
     Dates: start: 20231003
  48. MICONAZOLE [Concomitant]
     Active Substance: MICONAZOLE
     Indication: Pruritus
     Dosage: (APPLY TOPICALLY 2 TIMES A DAY)
     Route: 065
     Dates: start: 20230511
  49. MICONAZOLE [Concomitant]
     Active Substance: MICONAZOLE
     Dosage: (APPLY 1 APPLICATION TOPICALLY)
     Route: 065
  50. MORPHINE [Concomitant]
     Active Substance: MORPHINE
     Indication: Pain
     Dosage: 5 MILLIGRAM, BID
     Route: 065
     Dates: start: 20230511
  51. MORPHINE [Concomitant]
     Active Substance: MORPHINE
     Dosage: 0.25 MILLILITER
     Route: 065
     Dates: start: 20230111
  52. PREDNISONE [Concomitant]
     Active Substance: PREDNISONE
     Dosage: UNK
     Route: 065
     Dates: start: 20230711
  53. SENNOSIDES [Concomitant]
     Active Substance: SENNOSIDES
     Dosage: 5 MILLILITER
     Route: 065
     Dates: start: 20230511
  54. SYMBICORT [Concomitant]
     Active Substance: BUDESONIDE\FORMOTEROL FUMARATE DIHYDRATE
     Dosage: (USE 2 INHALATIONS BY MOUTH EVERY 12 HOURS)
     Route: 065
     Dates: start: 20220916
  55. VIMPAT [Concomitant]
     Active Substance: LACOSAMIDE
     Dosage: 1 DOSAGE FORM
     Route: 065
     Dates: start: 20220107
  56. VIMPAT [Concomitant]
     Active Substance: LACOSAMIDE
     Dosage: UNK
     Route: 065
     Dates: start: 20231103
  57. ATIVAN [Concomitant]
     Active Substance: LORAZEPAM
     Indication: Anxiety
     Dosage: 0.5 MILLIGRAM, Q4H (AS NEEDED )
     Route: 065
     Dates: start: 20231006
  58. FLEET ENEMA [Concomitant]
     Active Substance: SODIUM PHOSPHATE, DIBASIC\SODIUM PHOSPHATE, MONOBASIC
     Dosage: UNK
     Route: 065
     Dates: start: 20230807

REACTIONS (3)
  - Cardiac arrest [Fatal]
  - Device failure [Not Recovered/Not Resolved]
  - Needle issue [Not Recovered/Not Resolved]

NARRATIVE: CASE EVENT DATE: 20190604
